FAERS Safety Report 7761760-5 (Version None)
Quarter: 2011Q3

REPORT INFORMATION
  Report Type: 
  Country: None (occurrence: None)
  Receive Date: 20110920
  Receipt Date: 20110914
  Transmission Date: 20111222
  Serious: Yes (Death)
  Sender: FDA-Public Use
  Company Number: US-CELGENEUS-163-21880-11091771

PATIENT
  Sex: Female

DRUGS (9)
  1. DEXAMETHASONE [Concomitant]
     Route: 065
  2. SIMVASTATIN [Concomitant]
     Route: 065
  3. ZOLPIDEM TARTRATE [Concomitant]
     Route: 065
  4. REVLIMID [Suspect]
     Dosage: 5 MILLIGRAM
     Route: 048
     Dates: start: 20100119
  5. FLUOXETINE HYDROCHLORIDE [Concomitant]
     Route: 065
  6. ALPRAZOLAM [Concomitant]
     Route: 065
  7. CALCIUM 500 [Concomitant]
     Route: 065
  8. LEVOTHYROXINE SODIUM [Concomitant]
     Route: 065
  9. VITAMIN B COMPLEX CAP [Concomitant]
     Route: 065

REACTIONS (1)
  - DEATH [None]
